FAERS Safety Report 20503801 (Version 1)
Quarter: 2022Q1

REPORT INFORMATION
  Report Type: Spontaneous
  Country: US (occurrence: None)
  Receive Date: 20220221
  Receipt Date: 20220221
  Transmission Date: 20220423
  Serious: Yes (unspecified)
  Sender: FDA-Public Use
  Company Number: None

PATIENT
  Age: 15 Year
  Sex: Female

DRUGS (3)
  1. VYVANSE [Suspect]
     Active Substance: LISDEXAMFETAMINE DIMESYLATE
     Indication: Attention deficit hyperactivity disorder
     Dosage: FREQUENCY : DAILY;?
     Route: 048
     Dates: start: 20211029, end: 20211029
  2. Melatonin 3 mg [Concomitant]
  3. Acetaminophen 325 mg Q6 PRN [Concomitant]

REACTIONS (7)
  - Staring [None]
  - Hyperventilation [None]
  - Pain [None]
  - Dysphagia [None]
  - Drooling [None]
  - Tachycardia [None]
  - Tachypnoea [None]

NARRATIVE: CASE EVENT DATE: 20211029
